FAERS Safety Report 6050900-4 (Version None)
Quarter: 2009Q1

REPORT INFORMATION
  Report Type: 
  Country: None (occurrence: None)
  Receive Date: 20090126
  Receipt Date: 20080423
  Transmission Date: 20090719
  Serious: No
  Sender: FDA-Public Use
  Company Number: US-TYCO HEALTHCARE/MALLINCKRODT-T200800730

PATIENT

DRUGS (3)
  1. OPTIRAY 300 [Suspect]
     Indication: COMPUTERISED TOMOGRAM ABDOMEN
     Dosage: 14 ML, SINGLE
     Route: 042
     Dates: start: 20080422, end: 20080422
  2. PROPATHOL [Concomitant]
     Indication: ANAESTHESIA
     Dosage: 20 MG, SINGLE
     Route: 042
     Dates: start: 20080422, end: 20080422
  3. LIDOCAINE [Concomitant]
     Indication: ANAESTHESIA
     Dosage: 10 MG, SINGLE
     Route: 042
     Dates: start: 20080422, end: 20080422

REACTIONS (1)
  - RASH [None]
